FAERS Safety Report 8442582-9 (Version None)
Quarter: 2012Q2

REPORT INFORMATION
  Report Type: 
  Country: None (occurrence: None)
  Receive Date: 20120615
  Receipt Date: 20120608
  Transmission Date: 20120825
  Serious: Yes (Hospitalization)
  Sender: FDA-Public Use
  Company Number: FR-B.I. PHARMACEUTICALS,INC./RIDGEFIELD-2012-FF-00714FF

PATIENT
  Sex: Male

DRUGS (9)
  1. TWYNSTA [Suspect]
     Indication: HYPERTENSION
     Dosage: 80 MG/5 MG
     Route: 048
     Dates: end: 20120428
  2. HUMALOG [Concomitant]
     Indication: INSULIN-REQUIRING TYPE 2 DIABETES MELLITUS
     Dosage: 54 U
     Route: 058
  3. CRESTOR [Suspect]
     Dosage: 20 MG
     Route: 048
     Dates: end: 20120428
  4. ASPIRIN [Concomitant]
     Route: 048
  5. RAMIPRIL [Suspect]
     Dosage: 10 MG
     Route: 048
     Dates: end: 20120428
  6. LANTUS [Concomitant]
     Indication: INSULIN-REQUIRING TYPE 2 DIABETES MELLITUS
     Dosage: 70 U
     Route: 058
  7. ESOMEPRAZOLE [Suspect]
     Route: 048
     Dates: end: 20120428
  8. METFORMIN HCL [Suspect]
     Indication: INSULIN-REQUIRING TYPE 2 DIABETES MELLITUS
     Dosage: 3 G
     Route: 048
     Dates: end: 20120428
  9. BISOPROLOL FUMARATE [Concomitant]
     Route: 048

REACTIONS (1)
  - HEPATITIS ACUTE [None]
